FAERS Safety Report 6208320-5 (Version None)
Quarter: 2009Q2

REPORT INFORMATION
  Report Type: 
  Country: None (occurrence: None)
  Receive Date: 20090522
  Receipt Date: 20090511
  Transmission Date: 20091009
  Serious: Yes (Other)
  Sender: FDA-Public Use
  Company Number: 2009AP001923

PATIENT
  Age: 47 Year
  Sex: Male

DRUGS (2)
  1. TERBINAFINE HCL [Suspect]
     Indication: TINEA INFECTION
     Dosage: 250 MG;QD PO
     Route: 048
     Dates: start: 20080501, end: 20090201
  2. TERBINAFINE HCL [Concomitant]

REACTIONS (2)
  - MECHANICAL URTICARIA [None]
  - RASH PRURITIC [None]
